FAERS Safety Report 5401669-5 (Version None)
Quarter: 2007Q3

REPORT INFORMATION
  Report Type: 
  Country: None (occurrence: None)
  Receive Date: 20070731
  Receipt Date: 20070719
  Transmission Date: 20080115
  Serious: Yes (Other)
  Sender: FDA-Public Use
  Company Number: US-PFIZER INC-2007061297

PATIENT
  Sex: Female
  Weight: 83.6 kg

DRUGS (10)
  1. CHANTIX [Suspect]
     Indication: EX-SMOKER
     Route: 048
  2. METFORMIN HCL [Concomitant]
  3. ALTACE [Concomitant]
  4. GLIPIZIDE [Concomitant]
  5. NORVASC [Concomitant]
  6. SEROQUEL [Concomitant]
  7. ZOLPIDEM TARTRATE [Concomitant]
  8. MEXITIL [Concomitant]
  9. CLONAZEPAM [Concomitant]
  10. LEXAPRO [Concomitant]

REACTIONS (1)
  - BLOOD GLUCOSE INCREASED [None]
